FAERS Safety Report 23220885 (Version 1)
Quarter: 2023Q4

REPORT INFORMATION
  Report Type: Spontaneous
  Country: FR (occurrence: FR)
  Receive Date: 20231123
  Receipt Date: 20231123
  Transmission Date: 20240110
  Serious: Yes (Hospitalization, Other)
  Sender: FDA-Public Use
  Company Number: FR-AFSSAPS-NC2023001364

PATIENT
  Age: 50 Year
  Sex: Male

DRUGS (5)
  1. CITALOPRAM [Interacting]
     Active Substance: CITALOPRAM HYDROBROMIDE
     Indication: Depression
     Dosage: 40 MILLIGRAM, ONCE A DAY
     Route: 048
     Dates: end: 20231023
  2. CIPROFLOXACIN HYDROCHLORIDE [Interacting]
     Active Substance: CIPROFLOXACIN HYDROCHLORIDE
     Indication: Urinary tract infection
     Dosage: 1000 MILLIGRAM, ONCE A DAY
     Route: 048
     Dates: start: 20231020, end: 20231024
  3. CLOZAPINE [Interacting]
     Active Substance: CLOZAPINE
     Indication: Schizophrenia
     Dosage: 350 MILLIGRAM, ONCE A DAY
     Route: 048
     Dates: end: 20231102
  4. LOXAPINE [Interacting]
     Active Substance: LOXAPINE
     Indication: Psychotic disorder
     Dosage: 50 MILLIGRAM, ONCE A DAY
     Route: 048
     Dates: end: 20231013
  5. TRIMEPRAZINE [Interacting]
     Active Substance: TRIMEPRAZINE
     Indication: Insomnia
     Dosage: 15 MILLIGRAM, ONCE A DAY
     Route: 048
     Dates: end: 20231013

REACTIONS (4)
  - Ileus paralytic [Recovered/Resolved]
  - Subileus [Recovered/Resolved]
  - Confusional state [Recovered/Resolved]
  - Hypotonia [Recovered/Resolved]

NARRATIVE: CASE EVENT DATE: 20231021
